FAERS Safety Report 6579716-7 (Version None)
Quarter: 2010Q1

REPORT INFORMATION
  Report Type: 
  Country: None (occurrence: None)
  Receive Date: 20100212
  Receipt Date: 20100209
  Transmission Date: 20100710
  Serious: Yes (Hospitalization)
  Sender: FDA-Public Use
  Company Number: A0796489A

PATIENT
  Age: 45 Year
  Sex: Male
  Weight: 95.9 kg

DRUGS (2)
  1. AVANDAMET [Suspect]
     Route: 048
     Dates: start: 20040602, end: 20050301
  2. AVANDIA [Suspect]
     Route: 048
     Dates: start: 20050715, end: 20071001

REACTIONS (2)
  - CEREBROVASCULAR ACCIDENT [None]
  - MYOCARDIAL INFARCTION [None]
